FAERS Safety Report 6688250-5 (Version None)
Quarter: 2010Q2

REPORT INFORMATION
  Report Type: 
  Country: None (occurrence: None)
  Receive Date: 20100420
  Receipt Date: 20100412
  Transmission Date: 20101027
  Serious: Yes (Other)
  Sender: FDA-Public Use
  Company Number: US-SANOFI-AVENTIS-2010SA021259

PATIENT
  Age: 72 Year
  Sex: Male

DRUGS (5)
  1. MULTAQ [Suspect]
     Indication: ATRIAL FIBRILLATION
     Route: 048
     Dates: start: 20100201
  2. UROXATRAL [Suspect]
     Route: 048
     Dates: start: 20091101
  3. FINASTERIDE [Suspect]
     Route: 065
     Dates: start: 20090101
  4. COUMADIN [Concomitant]
  5. POTASSIUM [Concomitant]

REACTIONS (2)
  - ATRIAL FIBRILLATION [None]
  - DRUG INTERACTION [None]
